FAERS Safety Report 21937886 (Version 5)
Quarter: 2023Q2

REPORT INFORMATION
  Report Type: Report from Study
  Country: CA (occurrence: CA)
  Receive Date: 20230201
  Receipt Date: 20230605
  Transmission Date: 20230721
  Serious: Yes (Other)
  Sender: FDA-Public Use
  Company Number: CA-MYLANLABS-2023M1010734

PATIENT
  Sex: Female

DRUGS (2)
  1. HULIO [Suspect]
     Active Substance: ADALIMUMAB-FKJP
     Indication: Juvenile idiopathic arthritis
     Dosage: 40 MILLIGRAM, Q2W (EVERY OTHER WEEK)
     Route: 058
     Dates: start: 20221123
  2. HULIO [Suspect]
     Active Substance: ADALIMUMAB-FKJP
     Indication: Rheumatoid arthritis
     Dosage: UNK, QW
     Route: 058

REACTIONS (7)
  - Juvenile idiopathic arthritis [Unknown]
  - Malaise [Unknown]
  - Cough [Unknown]
  - Pain [Unknown]
  - Nasal congestion [Unknown]
  - Drug ineffective [Unknown]
  - Inappropriate schedule of product administration [Unknown]
